FAERS Safety Report 15015178 (Version 1)
Quarter: 2018Q2

REPORT INFORMATION
  Report Type: Spontaneous
  Country: US (occurrence: US)
  Receive Date: 20180530
  Receipt Date: 20180530
  Transmission Date: 20180711
  Serious: Yes (Other)
  Sender: FDA-Public Use
  Company Number: None

PATIENT
  Age: 58 Year
  Sex: Male
  Weight: 81 kg

DRUGS (7)
  1. LISINOPRIL. [Concomitant]
     Active Substance: LISINOPRIL
  2. VITAMIN D [Concomitant]
     Active Substance: CHOLECALCIFEROL
  3. METOPROLOL. [Concomitant]
     Active Substance: METOPROLOL
  4. MILK OF MAGNESIA [Concomitant]
     Active Substance: MAGNESIUM HYDROXIDE
  5. LORAZEPAM. [Concomitant]
     Active Substance: LORAZEPAM
  6. ZYTIGA [Suspect]
     Active Substance: ABIRATERONE ACETATE
     Indication: PRODUCT USED FOR UNKNOWN INDICATION
     Route: 048
     Dates: start: 20180305
  7. VERAPAMIL [Concomitant]
     Active Substance: VERAPAMIL HYDROCHLORIDE

REACTIONS (1)
  - Constipation [None]
